FAERS Safety Report 10586830 (Version 1)
Quarter: 2014Q4

REPORT INFORMATION
  Report Type: Spontaneous
  Country: US (occurrence: None)
  Receive Date: 20141114
  Receipt Date: 20141114
  Transmission Date: 20150529
  Serious: No
  Sender: FDA-Public Use
  Company Number: None

PATIENT
  Age: 20 Year
  Sex: Male
  Weight: 79.38 kg

DRUGS (1)
  1. METHYLPHENIDATE 36 AND 27 MGS MALLINCKRO [Suspect]
     Active Substance: METHYLPHENIDATE
     Indication: ATTENTION DEFICIT/HYPERACTIVITY DISORDER
     Dosage: 1 PILL
     Route: 048

REACTIONS (9)
  - Drug effect variable [None]
  - Anger [None]
  - Decreased appetite [None]
  - Psychomotor hyperactivity [None]
  - Emotional disorder [None]
  - Product substitution issue [None]
  - Tearfulness [None]
  - Disturbance in attention [None]
  - Product quality issue [None]

NARRATIVE: CASE EVENT DATE: 20140912
